FAERS Safety Report 22661726 (Version 6)
Quarter: 2024Q2

REPORT INFORMATION
  Report Type: Spontaneous
  Country: US (occurrence: US)
  Receive Date: 20230630
  Receipt Date: 20240603
  Transmission Date: 20240716
  Serious: Yes (Other)
  Sender: FDA-Public Use
  Company Number: US-BRISTOL-MYERS SQUIBB COMPANY-2023-092129

PATIENT
  Age: 64 Year
  Sex: Female
  Weight: 96.16 kg

DRUGS (3)
  1. POMALYST [Suspect]
     Active Substance: POMALIDOMIDE
     Indication: Plasma cell myeloma
     Dosage: FREQ - 21D Q28DAYS
     Route: 048
  2. POMALYST [Suspect]
     Active Substance: POMALIDOMIDE
     Route: 048
     Dates: start: 20230501
  3. POMALYST [Suspect]
     Active Substance: POMALIDOMIDE
     Route: 048

REACTIONS (19)
  - Illness [Recovered/Resolved]
  - Dizziness [Unknown]
  - Balance disorder [Unknown]
  - Nausea [Unknown]
  - Constipation [Unknown]
  - Vision blurred [Recovering/Resolving]
  - Rash pruritic [Unknown]
  - Fatigue [Recovering/Resolving]
  - Toothache [Unknown]
  - Erythema [Unknown]
  - Eye disorder [Unknown]
  - Bronchitis [Unknown]
  - Brain fog [Recovering/Resolving]
  - Acne [Recovering/Resolving]
  - Lethargy [Recovering/Resolving]
  - Arthralgia [Recovering/Resolving]
  - Bladder disorder [Recovering/Resolving]
  - Neuropathy peripheral [Recovering/Resolving]
  - Spinal osteoarthritis [Unknown]
